FAERS Safety Report 17308278 (Version 4)
Quarter: 2020Q2

REPORT INFORMATION
  Report Type: Spontaneous
  Country: PL (occurrence: PL)
  Receive Date: 20200123
  Receipt Date: 20200521
  Transmission Date: 20200713
  Serious: Yes (Hospitalization, Other)
  Sender: FDA-Public Use
  Company Number: NVSC2020PL016000

PATIENT
  Age: 80 Year
  Sex: Female

DRUGS (5)
  1. QUETIAPINE. [Suspect]
     Active Substance: QUETIAPINE
     Indication: SLEEP DISORDER
     Dosage: 50 MG, QD (IN THE EVENING)
     Route: 065
  2. TIAPRIDE [Suspect]
     Active Substance: TIAPRIDE
     Indication: DEMENTIA
  3. QUETIAPINE. [Suspect]
     Active Substance: QUETIAPINE
     Indication: AGITATION
  4. TIAPRIDE [Suspect]
     Active Substance: TIAPRIDE
     Indication: SLEEP DISORDER
     Dosage: 25 MG, TID (DOSE: 3X25 MG)
     Route: 065
  5. QUETIAPINE. [Suspect]
     Active Substance: QUETIAPINE
     Indication: SEDATION
     Dosage: 25 MG, QD, TREATMENT REDUCED TO HALF), QD, IN EVENING
     Route: 065

REACTIONS (10)
  - Product use in unapproved indication [Unknown]
  - Dementia [Unknown]
  - Abdominal pain [Unknown]
  - Asthenia [Unknown]
  - Hypotension [Unknown]
  - Extra dose administered [Unknown]
  - Off label use [Unknown]
  - Confusional state [Unknown]
  - Disorientation [Unknown]
  - Constipation [Unknown]
